FAERS Safety Report 11936520 (Version 2)
Quarter: 2016Q1

REPORT INFORMATION
  Report Type: Report from Study
  Country: PL (occurrence: PL)
  Receive Date: 20160121
  Receipt Date: 20160126
  Transmission Date: 20160526
  Serious: Yes (Death, Life-Threatening)
  Sender: FDA-Public Use
  Company Number: PL-AMGEN-POLCT2016006595

PATIENT
  Age: 86 Year
  Sex: Female
  Weight: 50.6 kg

DRUGS (10)
  1. CALCIUM [Concomitant]
     Active Substance: CALCIUM
     Dosage: 500 MG, UNK
     Route: 048
     Dates: start: 20121029, end: 20151020
  2. VICEBROL [Concomitant]
     Active Substance: VINPOCETINE
     Dosage: 5 MG, UNK
     Route: 048
     Dates: start: 2011, end: 20151020
  3. NOOTROPIL [Concomitant]
     Active Substance: PIRACETAM
     Dosage: 1.2 G, UNK
     Route: 048
     Dates: start: 2011, end: 20151020
  4. EUTHYROX [Concomitant]
     Active Substance: LEVOTHYROXINE SODIUM
     Dosage: 25 MUG, UNK
     Route: 048
     Dates: start: 2011, end: 20151020
  5. DENOSUMAB [Suspect]
     Active Substance: DENOSUMAB
     Indication: OSTEOPOROSIS POSTMENOPAUSAL
     Dosage: 1 ML, UNK
     Route: 058
     Dates: start: 20131223, end: 20150706
  6. AMLODIPINE [Concomitant]
     Active Substance: AMLODIPINE BESYLATE
     Dosage: 5 MG, UNK
     Route: 048
     Dates: start: 2011, end: 20151020
  7. POLPRAZOL                          /00661201/ [Concomitant]
     Dosage: 20 MG, UNK
     Route: 048
     Dates: start: 2011
  8. GLIBETIC                           /00145301/ [Concomitant]
     Dosage: 2 MG, UNK
     Route: 048
     Dates: start: 2011
  9. VITAMIN D                          /00107901/ [Concomitant]
     Active Substance: ERGOCALCIFEROL
     Dosage: 800 IU, UNK
     Route: 048
     Dates: start: 20121029
  10. TRITACE [Concomitant]
     Active Substance: RAMIPRIL
     Dosage: 5 MG, UNK
     Route: 048
     Dates: start: 2011, end: 20151020

REACTIONS (1)
  - Death [Fatal]

NARRATIVE: CASE EVENT DATE: 20151020
